FAERS Safety Report 9432306 (Version 1)
Quarter: 2013Q3

REPORT INFORMATION
  Report Type: Spontaneous
  Country: US (occurrence: US)
  Receive Date: 20130731
  Receipt Date: 20130731
  Transmission Date: 20140515
  Serious: No
  Sender: FDA-Public Use
  Company Number: US-PFIZER INC-2013223024

PATIENT
  Age: 69 Year
  Sex: Female
  Weight: 61.68 kg

DRUGS (4)
  1. LIPITOR [Suspect]
     Indication: BLOOD PRESSURE ABNORMAL
     Dosage: 5 MG, 1X/DAY
     Dates: start: 2011
  2. CELEBREX [Suspect]
     Indication: INTERVERTEBRAL DISC PROTRUSION
     Dosage: 200 MG, 1X/DAY
     Dates: start: 20130725
  3. CELEBREX [Suspect]
     Indication: ARTHRITIS
  4. CELEBREX [Suspect]
     Indication: PAIN

REACTIONS (2)
  - Drug ineffective [Unknown]
  - Off label use [Unknown]
